FAERS Safety Report 12552017 (Version 1)
Quarter: 2016Q3

REPORT INFORMATION
  Report Type: Report from Study
  Country: CO (occurrence: CO)
  Receive Date: 20160713
  Receipt Date: 20160713
  Transmission Date: 20161109
  Serious: Yes (Other)
  Sender: FDA-Public Use
  Company Number: PHHY2016CO074567

PATIENT
  Age: 55 Year
  Sex: Female
  Weight: 78 kg

DRUGS (2)
  1. AFINITOR [Suspect]
     Active Substance: EVEROLIMUS
     Indication: RENAL CANCER
     Dosage: 10 MG, QD
     Route: 048
     Dates: start: 20160319, end: 20160527
  2. ENALAPRIL [Concomitant]
     Active Substance: ENALAPRIL
     Indication: HYPERTENSION
     Dosage: 20 MG, Q12H (EVERY 12 HOURS)
     Route: 048

REACTIONS (12)
  - Contusion [Unknown]
  - Headache [Unknown]
  - Diarrhoea [Unknown]
  - Brain hypoxia [Unknown]
  - Fall [Unknown]
  - Arthralgia [Not Recovered/Not Resolved]
  - Nasal inflammation [Not Recovered/Not Resolved]
  - Vomiting [Unknown]
  - Gastritis [Recovered/Resolved]
  - Syncope [Recovered/Resolved]
  - Nausea [Unknown]
  - Abdominal pain upper [Unknown]

NARRATIVE: CASE EVENT DATE: 20160524
